FAERS Safety Report 21423585 (Version 2)
Quarter: 2022Q4

REPORT INFORMATION
  Report Type: Report from Study
  Country: US (occurrence: US)
  Receive Date: 20221007
  Receipt Date: 20221118
  Transmission Date: 20230112
  Serious: Yes (Hospitalization, Other)
  Sender: FDA-Public Use
  Company Number: US-BAYER-2022A134485

PATIENT
  Age: 58 Year
  Sex: Male

DRUGS (1)
  1. NEXAVAR [Suspect]
     Active Substance: SORAFENIB
     Indication: Hepatocellular carcinoma
     Dosage: 400 MG, BID
     Route: 048
     Dates: start: 20220830, end: 20220921

REACTIONS (9)
  - Oedema genital [Not Recovered/Not Resolved]
  - Blood pressure increased [Recovering/Resolving]
  - Pancreatitis chronic [Recovered/Resolved]
  - Ammonia increased [Recovered/Resolved]
  - Hepatic encephalopathy [None]
  - Confusional state [None]
  - Aggression [None]
  - Constipation [None]
  - Pancreatic enzymes increased [Recovered/Resolved]

NARRATIVE: CASE EVENT DATE: 20220901
